FAERS Safety Report 22323552 (Version 1)
Quarter: 2023Q2

REPORT INFORMATION
  Report Type: Spontaneous
  Country: IT (occurrence: IT)
  Receive Date: 20230516
  Receipt Date: 20230516
  Transmission Date: 20230721
  Serious: Yes (Hospitalization)
  Sender: FDA-Public Use
  Company Number: None

PATIENT
  Age: 51 Year
  Sex: Female

DRUGS (2)
  1. CAPECITABINE [Suspect]
     Active Substance: CAPECITABINE
     Indication: Adenocarcinoma of colon
     Dosage: CAPECITABINE ACCORD CP: 3 CP OF 500 MG AFTER BREAKFAST AND 3 CP OF 500 MG
     Dates: start: 20230327, end: 20230408
  2. OXALIPLATIN [Suspect]
     Active Substance: OXALIPLATIN
     Indication: Adenocarcinoma of colon
     Dosage: OXALIPLATIN AT A DOSE OF 160 MG IV (ACCORDING TO THE XELOX SCHEDULE EVERY 21 DAYS)
     Dates: start: 20230327, end: 20230327

REACTIONS (3)
  - Lipase increased [Not Recovered/Not Resolved]
  - Overflow diarrhoea [Recovered/Resolved]
  - Vomiting [Recovered/Resolved]

NARRATIVE: CASE EVENT DATE: 20230408
